FAERS Safety Report 24893521 (Version 2)
Quarter: 2025Q2

REPORT INFORMATION
  Report Type: Spontaneous
  Country: US (occurrence: US)
  Receive Date: 20250128
  Receipt Date: 20250523
  Transmission Date: 20250717
  Serious: No
  Sender: ELI LILLY AND COMPANY
  Company Number: US-ELI_LILLY_AND_COMPANY-US202501018311

PATIENT
  Age: 62 Year
  Sex: Female

DRUGS (1)
  1. VERZENIO [Suspect]
     Active Substance: ABEMACICLIB
     Indication: Product used for unknown indication
     Dosage: 1 DOSAGE FORM, BID (EVERY MORNING AND EVERY EVENING)
     Route: 048
     Dates: start: 20241226

REACTIONS (3)
  - Neutrophil count decreased [Unknown]
  - White blood cell count decreased [Unknown]
  - Diarrhoea [Unknown]
